FAERS Safety Report 4361458-X (Version None)
Quarter: 2004Q2

REPORT INFORMATION
  Report Type: 
  Country: None (occurrence: None)
  Receive Date: 20040521
  Receipt Date: 20030625
  Transmission Date: 20050107
  Serious: No
  Sender: FDA-Public Use
  Company Number: US-GLAXOSMITHKLINE-A0414038A

PATIENT
  Age: 59 Year
  Sex: Female

DRUGS (9)
  1. ZYBAN [Suspect]
     Dosage: 150MG TWICE PER DAY
     Route: 048
     Dates: start: 20030514
  2. NEURONTIN [Concomitant]
     Route: 065
  3. ZOLOFT [Concomitant]
     Route: 048
  4. ZOCOR [Concomitant]
     Route: 065
  5. ATENOLOL [Concomitant]
     Route: 065
  6. TRIAMTERENE [Concomitant]
     Route: 065
  7. XANAX [Concomitant]
     Route: 048
  8. SOMA [Concomitant]
     Route: 065
  9. VICOPROFEN [Concomitant]
     Route: 065

REACTIONS (1)
  - DRUG INEFFECTIVE [None]
